FAERS Safety Report 4721457-2 (Version None)
Quarter: 2005Q3

REPORT INFORMATION
  Report Type: 
  Country: None (occurrence: None)
  Receive Date: 20050721
  Receipt Date: 20040921
  Transmission Date: 20060218
  Serious: No
  Sender: FDA-Public Use
  Company Number: US-BRISTOL-MYERS SQUIBB COMPANY-12708202

PATIENT
  Age: 84 Year
  Sex: Female
  Weight: 53 kg

DRUGS (4)
  1. COUMADIN [Suspect]
     Indication: CARDIAC DISORDER
     Dosage: TAKES 2.5MG BUT THE NUMBER OF DAYS PER WEEK VARIES.AS OF 14-DEC-04, CONSUMER TAKING 2.5MG TAB QD
     Route: 048
  2. POTASSIUM CHLORIDE [Concomitant]
  3. COREG [Concomitant]
  4. DIURETIC [Concomitant]

REACTIONS (1)
  - PROTHROMBIN TIME RATIO ABNORMAL [None]
